FAERS Safety Report 8816558 (Version 1)
Quarter: 2012Q4

REPORT INFORMATION
  Report Type: Spontaneous
  Country: US (occurrence: None)
  Receive Date: 20121001
  Receipt Date: 20121001
  Transmission Date: 20130627
  Serious: Yes (Other)
  Sender: FDA-Public Use
  Company Number: None

PATIENT
  Age: 34 Year
  Sex: Female

DRUGS (1)
  1. LINDANE [Suspect]
     Indication: LICE NOS
     Dosage: 4 oz 1 time Topical (oil)
     Route: 061

REACTIONS (2)
  - Alopecia [None]
  - Scab [None]
